FAERS Safety Report 22175072 (Version 3)
Quarter: 2023Q2

REPORT INFORMATION
  Report Type: Spontaneous
  Country: IT (occurrence: IT)
  Receive Date: 20230405
  Receipt Date: 20230419
  Transmission Date: 20230722
  Serious: Yes (Life-Threatening, Hospitalization)
  Sender: FDA-Public Use
  Company Number: None

PATIENT
  Age: 73 Year
  Sex: Female

DRUGS (3)
  1. METFORMIN [Suspect]
     Active Substance: METFORMIN HYDROCHLORIDE
     Indication: Diabetes mellitus
     Dosage: 1000 MG, Q12H, METFORMIN 1000 X 2 (DOSAGE INCREASED DURING PREVIOUS HOSPITALIZATION FROM WHERE SHE W
     Route: 065
  2. COMPETACT [Suspect]
     Active Substance: METFORMIN HYDROCHLORIDE\PIOGLITAZONE HYDROCHLORIDE
     Indication: Diabetes mellitus
     Dosage: 1 DOSAGE FORM, Q24H, COMPETACT 15/850 THE SERA
     Route: 065
  3. FUROSEMIDE [Concomitant]
     Active Substance: FUROSEMIDE
     Indication: Hypertension
     Dosage: 25 MG, Q12H (FUROSEMIDE 25 1 CP X 2)
     Route: 065

REACTIONS (1)
  - Lactic acidosis [Recovered/Resolved]

NARRATIVE: CASE EVENT DATE: 20230319
